FAERS Safety Report 4410783-2 (Version None)
Quarter: 2004Q3

REPORT INFORMATION
  Report Type: 
  Country: None (occurrence: None)
  Receive Date: 20040728
  Receipt Date: 20040728
  Transmission Date: 20050211
  Serious: Yes (Other)
  Sender: FDA-Public Use
  Company Number: None

PATIENT
  Sex: Female

DRUGS (1)
  1. NAMENDA [Suspect]
     Dates: start: 20040223

REACTIONS (3)
  - COGNITIVE DISORDER [None]
  - COMMUNICATION DISORDER [None]
  - PSYCHOMOTOR SKILLS IMPAIRED [None]
